FAERS Safety Report 6965249-2 (Version None)
Quarter: 2010Q3

REPORT INFORMATION
  Report Type: 
  Country: None (occurrence: None)
  Receive Date: 20100903
  Receipt Date: 20100830
  Transmission Date: 20110219
  Serious: Yes (Death, Other)
  Sender: FDA-Public Use
  Company Number: PHHY2010JP57604

PATIENT
  Sex: Male
  Weight: 41 kg

DRUGS (11)
  1. AFINITOR [Suspect]
     Indication: METASTATIC RENAL CELL CARCINOMA
     Dosage: 10 MG, DAILY
     Route: 048
     Dates: start: 20100714, end: 20100804
  2. INTERFERON ALFA [Concomitant]
     Indication: METASTATIC RENAL CELL CARCINOMA
     Dosage: 6000000 IU, UNK
     Route: 042
     Dates: start: 20090216, end: 20090311
  3. SUNITINIB MALATE [Concomitant]
     Indication: METASTATIC RENAL CELL CARCINOMA
     Dosage: 50 MG, UNK
     Route: 048
     Dates: start: 20090311, end: 20100705
  4. SUNITINIB MALATE [Concomitant]
     Dosage: 25 MG, UNK
     Route: 048
  5. THYRADIN [Concomitant]
     Dosage: 100 ?G, UNK
     Route: 048
     Dates: start: 20090301, end: 20100804
  6. URSO 250 [Concomitant]
     Dosage: 300 MG, UNK
     Route: 048
     Dates: start: 20090401, end: 20100804
  7. FERROMIA [Concomitant]
     Dosage: 200 MG, UNK
     Route: 048
     Dates: start: 20090401, end: 20100804
  8. ALDACTONE [Concomitant]
     Dosage: 50 MG, UNK
     Route: 048
     Dates: start: 20090401, end: 20100804
  9. FAMOTIDINE [Concomitant]
     Dosage: 40 MG, UNK
     Route: 048
     Dates: start: 20100701, end: 20100804
  10. VOLTAREN [Concomitant]
     Indication: METASTATIC RENAL CELL CARCINOMA
     Dosage: 25 MG, UNK
     Route: 051
     Dates: start: 20100705
  11. AZUNOL [Concomitant]
     Indication: PROPHYLAXIS
     Dosage: UNK
     Route: 048
     Dates: start: 20100714, end: 20100804

REACTIONS (7)
  - BLOOD UREA INCREASED [None]
  - C-REACTIVE PROTEIN INCREASED [None]
  - CONDITION AGGRAVATED [None]
  - GASTROINTESTINAL PERFORATION [None]
  - PLATELET COUNT DECREASED [None]
  - RENAL IMPAIRMENT [None]
  - WHITE BLOOD CELL COUNT DECREASED [None]
